FAERS Safety Report 15898130 (Version 1)
Quarter: 2019Q1

REPORT INFORMATION
  Report Type: Report from Study
  Country: CO (occurrence: CO)
  Receive Date: 20190201
  Receipt Date: 20190201
  Transmission Date: 20190417
  Serious: Yes (Other)
  Sender: FDA-Public Use
  Company Number: CO-ROCHE-2252363

PATIENT
  Sex: Female

DRUGS (1)
  1. HERCEPTIN [Suspect]
     Active Substance: TRASTUZUMAB
     Indication: PRODUCT USED FOR UNKNOWN INDICATION
     Route: 065

REACTIONS (10)
  - Tremor [Unknown]
  - Cardiomegaly [Unknown]
  - Oral mucosal exfoliation [Unknown]
  - Myalgia [Recovering/Resolving]
  - Asthenia [Unknown]
  - Tachycardia [Unknown]
  - Glossodynia [Unknown]
  - Cardiac disorder [Unknown]
  - Bone pain [Unknown]
  - Stomatitis [Recovering/Resolving]
